FAERS Safety Report 4700939-3 (Version None)
Quarter: 2005Q2

REPORT INFORMATION
  Report Type: 
  Country: None (occurrence: None)
  Receive Date: 20050624
  Receipt Date: 20050620
  Transmission Date: 20051028
  Serious: Yes (Hospitalization, Other)
  Sender: FDA-Public Use
  Company Number: 200512437BC

PATIENT
  Age: 4 Year
  Sex: Male
  Weight: 19.9583 kg

DRUGS (2)
  1. RID MOUSSE [Suspect]
     Indication: LICE INFESTATION
     Dates: start: 20050603
  2. RID HOME LICE CONTROL SPRAY [Suspect]
     Indication: LICE INFESTATION
     Dosage: RESPIRATORY (INHALATION)
     Route: 055
     Dates: start: 20050603

REACTIONS (3)
  - NERVE INJURY [None]
  - STREPTOCOCCAL INFECTION [None]
  - SYDENHAM'S CHOREA [None]
